FAERS Safety Report 26103417 (Version 3)
Quarter: 2025Q4

REPORT INFORMATION
  Report Type: Report from Study
  Country: US (occurrence: US)
  Receive Date: 20251129
  Receipt Date: 20251215
  Transmission Date: 20260118
  Serious: Yes (Hospitalization)
  Sender: ABBVIE
  Company Number: US-ABBVIE-6507248

PATIENT
  Age: 76 Year
  Sex: Male
  Weight: 72.574 kg

DRUGS (11)
  1. VYALEV [Suspect]
     Active Substance: FOSCARBIDOPA\FOSLEVODOPA
     Indication: Parkinson^s disease
     Dosage: CURRENT DOSE RATE: 0.32 BASE RATE, 0.34 HIGH RATE, AND 0.30 LOW RATE.
     Route: 058
     Dates: start: 20250714
  2. VITAMIN B12 [Concomitant]
     Active Substance: CYANOCOBALAMIN
     Indication: Vitamin supplementation
  3. NUPLAZID [Concomitant]
     Active Substance: PIMAVANSERIN TARTRATE
     Indication: Hallucination
  4. MIRABEGRON [Concomitant]
     Active Substance: MIRABEGRON
     Indication: Urinary incontinence
  5. DONEPEZIL [Concomitant]
     Active Substance: DONEPEZIL
     Indication: Memory impairment
     Dosage: TWO TIMES PER DAY
  6. MIDODRINE [Concomitant]
     Active Substance: MIDODRINE
     Indication: Hypotension
  7. SYNTHROID [Concomitant]
     Active Substance: LEVOTHYROXINE SODIUM
     Indication: Thyroid disorder
  8. MEMANTINE [Concomitant]
     Active Substance: MEMANTINE
     Indication: Memory impairment
  9. GOCOVRI [Suspect]
     Active Substance: AMANTADINE
     Indication: Product used for unknown indication
     Route: 065
  10. RYTARY [Concomitant]
     Active Substance: CARBIDOPA\LEVODOPA
     Indication: Product used for unknown indication
  11. LEVOTHYROXINE [Concomitant]
     Active Substance: LEVOTHYROXINE
     Indication: Product used for unknown indication

REACTIONS (10)
  - Blood pressure fluctuation [Recovered/Resolved]
  - Hallucination [Not Recovered/Not Resolved]
  - Urinary tract infection [Recovered/Resolved]
  - Delusion [Not Recovered/Not Resolved]
  - Sleep talking [Not Recovered/Not Resolved]
  - Poor quality sleep [Unknown]
  - Paranoia [Not Recovered/Not Resolved]
  - Catheter site induration [Recovered/Resolved with Sequelae]
  - Catheter site nodule [Unknown]
  - Infusion site papule [Not Recovered/Not Resolved]

NARRATIVE: CASE EVENT DATE: 20250101
